FAERS Safety Report 6234252-2 (Version None)
Quarter: 2009Q2

REPORT INFORMATION
  Report Type: 
  Country: None (occurrence: None)
  Receive Date: 20090615
  Receipt Date: 20090108
  Transmission Date: 20091009
  Serious: No
  Sender: FDA-Public Use
  Company Number: 430001K09USA

PATIENT
  Age: 35 Year
  Sex: Female
  Weight: 94 kg

DRUGS (20)
  1. NOVANTRONE [Suspect]
     Indication: MULTIPLE SCLEROSIS
     Dates: start: 20070901, end: 20080501
  2. REBIF [Concomitant]
  3. METFORMIN HCL [Concomitant]
  4. STARLIX [Concomitant]
  5. ACIPHEX [Concomitant]
  6. PREDNISONE TAB [Concomitant]
  7. SOLU-MEDROL [Concomitant]
  8. ESTRADIOL [Concomitant]
  9. TOPAMAX [Concomitant]
  10. TOPROL-XL [Concomitant]
  11. DURAGESIC-100 [Concomitant]
  12. MORPHINE SULFATE INJ [Concomitant]
  13. AMBIEN [Concomitant]
  14. CYMBALTA [Concomitant]
  15. REMERON [Concomitant]
  16. SEROQUEL [Concomitant]
  17. KLONOPIN [Concomitant]
  18. HYDROCHLOROTHIAZIDE [Concomitant]
  19. POTASSIUM (POTASSIUM) [Concomitant]
  20. COPAXONE [Concomitant]

REACTIONS (1)
  - MULTIPLE SCLEROSIS RELAPSE [None]
